FAERS Safety Report 8273081-5 (Version None)
Quarter: 2012Q2

REPORT INFORMATION
  Report Type: 
  Country: None (occurrence: None)
  Receive Date: 20120411
  Receipt Date: 20120405
  Transmission Date: 20120825
  Serious: No
  Sender: FDA-Public Use
  Company Number: US-PFIZER INC-2012087254

PATIENT
  Sex: Female
  Weight: 65.76 kg

DRUGS (3)
  1. AGGRENOX [Interacting]
     Dosage: 25/200MG, 2X/DAY
     Dates: start: 20120301
  2. SEROQUEL [Interacting]
     Dosage: UNK
  3. LYRICA [Suspect]
     Indication: PAIN
     Dosage: UNK
     Dates: start: 20120101

REACTIONS (2)
  - PAIN [None]
  - DRUG INTERACTION [None]
